FAERS Safety Report 14169274 (Version 1)
Quarter: 2017Q4

REPORT INFORMATION
  Report Type: Spontaneous
  Country: US (occurrence: US)
  Receive Date: 20171107
  Receipt Date: 20171107
  Transmission Date: 20180321
  Serious: Yes (Hospitalization)
  Sender: FDA-Public Use
  Company Number: None

PATIENT
  Age: 46 Year

DRUGS (5)
  1. SPIRIVA RESPIMAT [Suspect]
     Active Substance: TIOTROPIUM BROMIDE
     Indication: ASTHMA
     Route: 055
     Dates: start: 20171030, end: 20171106
  2. ALBUTEROL. [Concomitant]
     Active Substance: ALBUTEROL
  3. MOMETASONE FUROATE. [Concomitant]
     Active Substance: MOMETASONE FUROATE
  4. SYMBICORT [Concomitant]
     Active Substance: BUDESONIDE\FORMOTEROL FUMARATE DIHYDRATE
  5. CURCUMIN/TURMERIC SUPPLEMENT [Concomitant]

REACTIONS (2)
  - Loss of personal independence in daily activities [None]
  - Asthma [None]

NARRATIVE: CASE EVENT DATE: 20171105
